APPROVED DRUG PRODUCT: BIMATOPROST
Active Ingredient: BIMATOPROST
Strength: 0.03%
Dosage Form/Route: SOLUTION/DROPS;OPHTHALMIC
Application: A203991 | Product #001
Applicant: LUPIN LTD
Approved: Feb 20, 2015 | RLD: No | RS: No | Type: DISCN